FAERS Safety Report 6878316-9 (Version None)
Quarter: 2010Q3

REPORT INFORMATION
  Report Type: 
  Country: None (occurrence: None)
  Receive Date: 20100728
  Receipt Date: 20100713
  Transmission Date: 20110219
  Serious: No
  Sender: FDA-Public Use
  Company Number: US-TEVA-242163USA

PATIENT
  Sex: Male
  Weight: 91.708 kg

DRUGS (4)
  1. AZILECT [Suspect]
     Indication: PARKINSON'S DISEASE
     Route: 048
     Dates: start: 20091201
  2. BENICAR HCT [Concomitant]
  3. ACETYLSALICYLIC ACID SRT [Concomitant]
  4. VITAMINS [Concomitant]

REACTIONS (2)
  - COUGH [None]
  - UPPER-AIRWAY COUGH SYNDROME [None]
